FAERS Safety Report 4868210-7 (Version None)
Quarter: 2005Q4

REPORT INFORMATION
  Report Type: 
  Country: None (occurrence: None)
  Receive Date: 20051227
  Receipt Date: 20051108
  Transmission Date: 20060501
  Serious: Yes (Death)
  Sender: FDA-Public Use
  Company Number: MK200512-0367-1

PATIENT
  Age: 48 Year

DRUGS (1)
  1. HYDROCODONE/APAP TABLET (STRENGTH UNKNOWN) ACETAMINOPHEN/HISTAMINE AND [Suspect]
     Dosage: PO
     Route: 048
     Dates: end: 20040101

REACTIONS (2)
  - INTENTIONAL DRUG MISUSE [None]
  - MULTIPLE DRUG OVERDOSE [None]
